FAERS Safety Report 4532226-0 (Version None)
Quarter: 2004Q4

REPORT INFORMATION
  Report Type: 
  Country: None (occurrence: None)
  Receive Date: 20041217
  Receipt Date: 20041201
  Transmission Date: 20050328
  Serious: Yes (Other)
  Sender: FDA-Public Use
  Company Number: DSA_25478_2004

PATIENT
  Age: 79 Year
  Sex: Female

DRUGS (2)
  1. TEMESTA [Suspect]
     Indication: SLEEP DISORDER
     Dosage: 0.5 MG Q DAY PO
     Route: 048
     Dates: start: 19730101
  2. HYTACAND [Concomitant]

REACTIONS (5)
  - AMNESIA [None]
  - DEPENDENCE [None]
  - DYSGEUSIA [None]
  - INSOMNIA [None]
  - UNEVALUABLE EVENT [None]
